FAERS Safety Report 9391732 (Version 2)
Quarter: 2013Q4

REPORT INFORMATION
  Report Type: Spontaneous
  Country: GB (occurrence: GB)
  Receive Date: 20130709
  Receipt Date: 20131029
  Transmission Date: 20140711
  Serious: Yes (Life-Threatening)
  Sender: FDA-Public Use
  Company Number: GB-GLAXOSMITHKLINE-B0905592A

PATIENT
  Age: 91 Year
  Sex: 0

DRUGS (5)
  1. CEFUROXIME [Suspect]
     Route: 042
     Dates: start: 20110609, end: 20110609
  2. GENTAMICIN [Suspect]
     Route: 042
     Dates: start: 20110622, end: 20110622
  3. CIPROFLOXACIN [Suspect]
     Indication: PSEUDOMONAS INFECTION
     Dosage: 1000MG PER DAY
     Route: 048
     Dates: start: 20110617, end: 20110621
  4. PIPERACILLIN + TAZOBACTAM [Suspect]
     Dosage: 13.5G PER DAY
     Route: 042
     Dates: start: 20110625, end: 20110701
  5. GENTAMICIN [Suspect]
     Route: 042
     Dates: start: 20110624, end: 20110624

REACTIONS (1)
  - Clostridium difficile infection [Unknown]
